FAERS Safety Report 11973801 (Version 1)
Quarter: 2016Q1

REPORT INFORMATION
  Report Type: Report from Study
  Country: US (occurrence: US)
  Receive Date: 20160128
  Receipt Date: 20160128
  Transmission Date: 20160526
  Serious: No
  Sender: FDA-Public Use
  Company Number: US-ABBVIE-15K-163-1401305-00

PATIENT
  Age: 47 Year
  Sex: Female

DRUGS (1)
  1. HUMIRA [Suspect]
     Active Substance: ADALIMUMAB
     Indication: ANKYLOSING SPONDYLITIS
     Route: 065
     Dates: start: 20150429

REACTIONS (5)
  - Computerised tomogram abdomen abnormal [Unknown]
  - Dizziness postural [Not Recovered/Not Resolved]
  - Sinusitis [Not Recovered/Not Resolved]
  - Productive cough [Not Recovered/Not Resolved]
  - Ear discomfort [Not Recovered/Not Resolved]

NARRATIVE: CASE EVENT DATE: 20150521
